FAERS Safety Report 18657743 (Version 1)
Quarter: 2020Q4

REPORT INFORMATION
  Report Type: Spontaneous
  Country: US (occurrence: US)
  Receive Date: 20201223
  Receipt Date: 20201223
  Transmission Date: 20210114
  Serious: Yes (Other)
  Sender: FDA-Public Use
  Company Number: US-COOPERSURGICAL, INC.-US-2020CPS001525

PATIENT
  Age: 18 Year
  Sex: Female
  Weight: 21.4 kg

DRUGS (1)
  1. PARAGARD T 380A [Suspect]
     Active Substance: COPPER
     Indication: CONTRACEPTION
     Dosage: UNK
     Route: 015
     Dates: start: 20190717

REACTIONS (7)
  - Fatigue [Unknown]
  - Menstruation irregular [Unknown]
  - Device expulsion [Unknown]
  - Drug ineffective [Unknown]
  - Pelvic discomfort [Unknown]
  - Pregnancy with contraceptive device [Unknown]
  - Abdominal distension [Unknown]

NARRATIVE: CASE EVENT DATE: 201910
